FAERS Safety Report 15035870 (Version 1)
Quarter: 2018Q2

REPORT INFORMATION
  Report Type: Spontaneous
  Country: US (occurrence: US)
  Receive Date: 20180530
  Receipt Date: 20180530
  Transmission Date: 20180711
  Serious: No
  Sender: FDA-Public Use
  Company Number: None

PATIENT
  Age: 73 Year
  Sex: Male

DRUGS (1)
  1. ZYTIGA [Suspect]
     Active Substance: ABIRATERONE ACETATE
     Dates: start: 20171006, end: 20180529

REACTIONS (5)
  - Weight increased [None]
  - Cerebral haemorrhage [None]
  - Fall [None]
  - Head injury [None]
  - Blood pressure decreased [None]

NARRATIVE: CASE EVENT DATE: 20180507
